FAERS Safety Report 14103055 (Version 1)
Quarter: 2017Q4

REPORT INFORMATION
  Report Type: Spontaneous
  Country: DM (occurrence: DM)
  Receive Date: 20171018
  Receipt Date: 20171018
  Transmission Date: 20180321
  Serious: Yes (Other)
  Sender: FDA-Public Use
  Company Number: DM-HQ SPECIALTY-DM-2017INT000369

PATIENT

DRUGS (2)
  1. PACLITAXEL. [Suspect]
     Active Substance: PACLITAXEL
     Indication: OVARIAN CANCER STAGE III
     Dosage: 100 MG, (RECEIVED 2 OF HER LAST 6 CHEMOTHERAPY TREATMENT)
     Route: 042
  2. CARBOPLATIN. [Suspect]
     Active Substance: CARBOPLATIN
     Indication: OVARIAN CANCER STAGE III
     Dosage: UNK, PATIENT HAS RECEIVED 2 OF HER LAST 6 CHEMOTHERAPY TREATMENTS
     Route: 065

REACTIONS (2)
  - General physical health deterioration [Unknown]
  - Drug dose omission [Unknown]
